FAERS Safety Report 22323522 (Version 1)
Quarter: 2023Q2

REPORT INFORMATION
  Report Type: Spontaneous
  Country: US (occurrence: US)
  Receive Date: 20230516
  Receipt Date: 20230516
  Transmission Date: 20230722
  Serious: Yes (Hospitalization)
  Sender: FDA-Public Use
  Company Number: US-MYLANLABS-2023M1049509

PATIENT
  Age: 31 Year
  Sex: Male

DRUGS (3)
  1. ROCURONIUM [Suspect]
     Active Substance: ROCURONIUM BROMIDE
     Indication: Drug therapy
     Dosage: 4 MILLILITER
     Route: 065
  2. SUCCINYLCHOLINE [Suspect]
     Active Substance: SUCCINYLCHOLINE
     Indication: Induction and maintenance of anaesthesia
     Dosage: 70 MILLIGRAM
     Route: 065
  3. METHOHEXITAL [Concomitant]
     Active Substance: METHOHEXITAL
     Indication: Induction and maintenance of anaesthesia
     Dosage: 70 MILLIGRAM
     Route: 065

REACTIONS (4)
  - Delayed recovery from anaesthesia [Recovered/Resolved]
  - Wrong product administered [Recovered/Resolved]
  - Product label confusion [Recovered/Resolved]
  - Product packaging confusion [Recovered/Resolved]
